FAERS Safety Report 4859444-6 (Version None)
Quarter: 2005Q4

REPORT INFORMATION
  Report Type: 
  Country: None (occurrence: None)
  Receive Date: 20051215
  Receipt Date: 20051202
  Transmission Date: 20060501
  Serious: Yes (Other)
  Sender: FDA-Public Use
  Company Number: 2005166601

PATIENT
  Age: 63 Year
  Sex: Male

DRUGS (10)
  1. SULPERAZON (SULBACTAM, CEFOPERAZONE) [Suspect]
     Indication: INFECTION
     Dosage: 2 GRAM, INTRAVENOUS
     Route: 042
     Dates: start: 20050928, end: 20051006
  2. BLOPRESS (CANDESARTAN CILEXETIL) [Concomitant]
  3. MAGNESIUM OXIDE (MAGNESIUM OXIDE) [Concomitant]
  4. ENALAPRIL MALEATE [Concomitant]
  5. ISOSORBIDE DINITRATE [Concomitant]
  6. MEXITIL [Concomitant]
  7. CALCIUM CARBONATE (CALCIUM CARBONATE) [Concomitant]
  8. LAC B (LACTOBACILIUS BIFIDUS, LYOPHILIZED) [Concomitant]
  9. VALPROATE SODIUM [Concomitant]
  10. SELBEX (TEPRENONE) [Concomitant]

REACTIONS (5)
  - ANAEMIA [None]
  - CONDITION AGGRAVATED [None]
  - EPISTAXIS [None]
  - PNEUMONIA ASPIRATION [None]
  - PROTHROMBIN LEVEL DECREASED [None]
